FAERS Safety Report 14413479 (Version 3)
Quarter: 2018Q1

REPORT INFORMATION
  Report Type: Spontaneous
  Country: GB (occurrence: GB)
  Receive Date: 20180119
  Receipt Date: 20180306
  Transmission Date: 20180509
  Serious: Yes (Death, Hospitalization, Other)
  Sender: FDA-Public Use
  Company Number: GB-MYLANLABS-2016M1032769

PATIENT
  Age: 52 Year
  Sex: Female

DRUGS (1)
  1. CLOZARIL [Suspect]
     Active Substance: CLOZAPINE
     Indication: SCHIZOPHRENIA
     Dosage: UNK
     Route: 048
     Dates: start: 20120216

REACTIONS (5)
  - Breast cancer [Fatal]
  - Bone marrow failure [Unknown]
  - Thrombocytopenia [Not Recovered/Not Resolved]
  - Metastases to bone [Unknown]
  - Anaemia [Unknown]

NARRATIVE: CASE EVENT DATE: 20141009
